FAERS Safety Report 9437347 (Version 3)
Quarter: 2014Q3

REPORT INFORMATION
  Report Type: Spontaneous
  Country: US (occurrence: US)
  Receive Date: 20130802
  Receipt Date: 20140716
  Transmission Date: 20150326
  Serious: Yes (Hospitalization, Disabling, Other)
  Sender: FDA-Public Use
  Company Number: US-009507513-1307USA017049

PATIENT
  Sex: Female
  Weight: 81.63 kg

DRUGS (3)
  1. NUVARING [Suspect]
     Active Substance: ETHINYL ESTRADIOL\ETONOGESTREL
     Dosage: UNK
     Route: 067
     Dates: start: 20090106
  2. NUVARING [Suspect]
     Active Substance: ETHINYL ESTRADIOL\ETONOGESTREL
     Indication: CONTRACEPTION
     Dosage: UNK
     Route: 067
     Dates: start: 20070526, end: 200804
  3. NUVARING [Suspect]
     Active Substance: ETHINYL ESTRADIOL\ETONOGESTREL
     Dosage: UNK
     Route: 067
     Dates: start: 20091109, end: 20100107

REACTIONS (11)
  - Endometritis [Unknown]
  - Nausea [Recovered/Resolved]
  - Vomiting [Recovered/Resolved]
  - Pulmonary embolism [Unknown]
  - Coagulopathy [Unknown]
  - Cervicitis [Unknown]
  - Bartholin^s abscess [Unknown]
  - Vaginitis bacterial [Unknown]
  - Chest pain [Unknown]
  - Incorrect drug administration duration [Unknown]
  - Maternal exposure before pregnancy [Recovered/Resolved]

NARRATIVE: CASE EVENT DATE: 20080214
